FAERS Safety Report 9738512 (Version 1)
Quarter: 2013Q4

REPORT INFORMATION
  Report Type: Spontaneous
  Country: GR (occurrence: GR)
  Receive Date: 20131209
  Receipt Date: 20131209
  Transmission Date: 20140711
  Serious: Yes (Other)
  Sender: FDA-Public Use
  Company Number: GR-ROCHE-1312553

PATIENT
  Age: 66 Year
  Sex: Female

DRUGS (3)
  1. CELLCEPT [Suspect]
     Indication: RENAL FAILURE ACUTE
     Dosage: UNKNOWN DOSE
     Route: 048
  2. CELLCEPT [Suspect]
     Indication: GLOMERULONEPHRITIS
     Dosage: 2 TABLETS PER DAY, ONE IN THE MORNING, ONE AT NIGHT.
     Route: 048
  3. MEDROL [Suspect]
     Indication: PRODUCT USED FOR UNKNOWN INDICATION
     Route: 065

REACTIONS (4)
  - Wound [Not Recovered/Not Resolved]
  - Swelling face [Not Recovered/Not Resolved]
  - Alopecia [Not Recovered/Not Resolved]
  - Off label use [Unknown]
